FAERS Safety Report 17088818 (Version 1)
Quarter: 2019Q4

REPORT INFORMATION
  Report Type: Spontaneous
  Country: US (occurrence: US)
  Receive Date: 20191128
  Receipt Date: 20191128
  Transmission Date: 20200122
  Serious: No
  Sender: FDA-Public Use
  Company Number: US-ROCHE-1218659

PATIENT
  Age: 31 Year
  Sex: Female

DRUGS (8)
  1. HERCEPTIN [Suspect]
     Active Substance: TRASTUZUMAB
     Route: 042
     Dates: start: 20111229
  2. HERCEPTIN [Suspect]
     Active Substance: TRASTUZUMAB
     Route: 042
     Dates: start: 20120112, end: 20120830
  3. HERCEPTIN [Suspect]
     Active Substance: TRASTUZUMAB
     Route: 042
     Dates: start: 20111215
  4. NEULASTA [Concomitant]
     Active Substance: PEGFILGRASTIM
     Indication: BREAST CANCER
     Route: 065
     Dates: start: 20111006, end: 20111117
  5. TAXOL [Concomitant]
     Active Substance: PACLITAXEL
     Indication: BREAST CANCER
     Route: 065
     Dates: start: 20111201, end: 20120112
  6. CYTOXAN [Concomitant]
     Active Substance: CYCLOPHOSPHAMIDE
     Indication: BREAST CANCER
     Route: 065
     Dates: start: 20111006, end: 20111117
  7. HERCEPTIN [Suspect]
     Active Substance: TRASTUZUMAB
     Indication: BREAST CANCER
     Route: 042
     Dates: start: 20111201
  8. ADRIAMYCIN [Concomitant]
     Active Substance: DOXORUBICIN HYDROCHLORIDE
     Indication: BREAST CANCER
     Route: 065
     Dates: start: 20111006, end: 20111117

REACTIONS (1)
  - Pregnancy [Unknown]
